FAERS Safety Report 24428548 (Version 2)
Quarter: 2024Q4

REPORT INFORMATION
  Report Type: Report from Study
  Country: IN (occurrence: IN)
  Receive Date: 20241011
  Receipt Date: 20241210
  Transmission Date: 20250115
  Serious: Yes (Hospitalization, Other)
  Sender: INCYTE
  Company Number: IN-002147023-NVSC2024IN158435

PATIENT

DRUGS (3)
  1. RUXOLITINIB [Suspect]
     Active Substance: RUXOLITINIB
     Indication: Primary myelofibrosis
     Dosage: 5 MG, BID
     Route: 048
     Dates: start: 20240725
  2. RUXOLITINIB [Suspect]
     Active Substance: RUXOLITINIB
     Dosage: 5 MG, BID
     Route: 048
     Dates: start: 20240726, end: 20240803
  3. DANZOL [Concomitant]
     Indication: Product used for unknown indication
     Dosage: 200 MG, BID ME12O
     Route: 065

REACTIONS (12)
  - Full blood count abnormal [Unknown]
  - Cough [Unknown]
  - Erythema [Unknown]
  - Liver palpable [Unknown]
  - Diarrhoea [Unknown]
  - Chest pain [Unknown]
  - Pallor [Unknown]
  - Platelet count decreased [Recovered/Resolved]
  - Skin hyperpigmentation [Unknown]
  - Peripheral swelling [Recovered/Resolved]
  - Pyrexia [Recovered/Resolved]
  - Asthenia [Unknown]

NARRATIVE: CASE EVENT DATE: 20240730
